FAERS Safety Report 8352451-0 (Version None)
Quarter: 2012Q2

REPORT INFORMATION
  Report Type: 
  Country: None (occurrence: None)
  Receive Date: 20120511
  Receipt Date: 20120508
  Transmission Date: 20120825
  Serious: Yes (Other)
  Sender: FDA-Public Use
  Company Number: PHEH2012US009392

PATIENT
  Sex: Female

DRUGS (1)
  1. TEGRETOL [Suspect]
     Indication: CONVULSION
     Dosage: 900 MG,DAILY

REACTIONS (3)
  - HERPES ZOSTER [None]
  - MUSCULOSKELETAL PAIN [None]
  - CONVULSION [None]
